APPROVED DRUG PRODUCT: TOPOTECAN
Active Ingredient: TOPOTECAN HYDROCHLORIDE
Strength: EQ 1MG BASE/ML (EQ 1MG BASE/ML) **Federal Register determination that product was not discontinued or withdrawn for safety or effectiveness reasons**
Dosage Form/Route: SOLUTION;INTRAVENOUS
Application: N200199 | Product #001
Applicant: SANDOZ INC
Approved: Feb 25, 2011 | RLD: Yes | RS: No | Type: DISCN